FAERS Safety Report 19144731 (Version 1)
Quarter: 2021Q2

REPORT INFORMATION
  Report Type: Spontaneous
  Country: US (occurrence: US)
  Receive Date: 20210415
  Receipt Date: 20210415
  Transmission Date: 20210717
  Serious: No
  Sender: FDA-Public Use
  Company Number: None

PATIENT
  Sex: Female

DRUGS (5)
  1. DALADFAMPRIDIN [Concomitant]
  2. GABAPENTIN. [Concomitant]
     Active Substance: GABAPENTIN
  3. AMITRIPTYLIN [Concomitant]
     Active Substance: AMITRIPTYLINE
  4. OXYBUTYNIN. [Concomitant]
     Active Substance: OXYBUTYNIN CHLORIDE
  5. DALFAMPRIDINE. [Suspect]
     Active Substance: DALFAMPRIDINE
     Indication: MULTIPLE SCLEROSIS
     Route: 048
     Dates: start: 20210224

REACTIONS (7)
  - Cognitive disorder [None]
  - Fall [None]
  - Fatigue [None]
  - Bladder disorder [None]
  - Pain [None]
  - Functional gastrointestinal disorder [None]
  - Musculoskeletal stiffness [None]
